FAERS Safety Report 5661850-7 (Version None)
Quarter: 2008Q1

REPORT INFORMATION
  Report Type: 
  Country: None (occurrence: None)
  Receive Date: 20080312
  Receipt Date: 20080228
  Transmission Date: 20080703
  Serious: Yes (Other)
  Sender: FDA-Public Use
  Company Number: CA-PURDUE-CAN_2008_0000494

PATIENT
  Age: 63 Year
  Sex: Male

DRUGS (2)
  1. OXYCONTIN [Suspect]
     Indication: DRUG USE FOR UNKNOWN INDICATION
     Route: 048
  2. LUPRON [Suspect]
     Indication: DRUG USE FOR UNKNOWN INDICATION
     Dosage: 30 MG, SEE TEXT
     Route: 030

REACTIONS (5)
  - ACCIDENTAL OVERDOSE [None]
  - CONFUSIONAL STATE [None]
  - MICTURITION URGENCY [None]
  - URINARY RETENTION [None]
  - URINARY TRACT INFECTION [None]
